FAERS Safety Report 17440873 (Version 2)
Quarter: 2020Q3

REPORT INFORMATION
  Report Type: Spontaneous
  Country: US (occurrence: US)
  Receive Date: 20200220
  Receipt Date: 20200910
  Transmission Date: 20201102
  Serious: No
  Sender: FDA-Public Use
  Company Number: US-EISAI MEDICAL RESEARCH-EC-2020-069916

PATIENT
  Age: 61 Year
  Sex: Female

DRUGS (3)
  1. LENVIMA [Suspect]
     Active Substance: LENVATINIB
     Indication: ENDOMETRIAL CANCER
     Route: 048
     Dates: start: 20191230, end: 20200210
  2. PEMBROLIZUMAB. [Suspect]
     Active Substance: PEMBROLIZUMAB
     Indication: ENDOMETRIAL CANCER
     Route: 042
     Dates: start: 20191230, end: 20200210
  3. LENVIMA [Suspect]
     Active Substance: LENVATINIB
     Dates: start: 20200604

REACTIONS (3)
  - Stomatitis [Unknown]
  - Hyperthyroidism [Not Recovered/Not Resolved]
  - Diarrhoea [Unknown]

NARRATIVE: CASE EVENT DATE: 20200207
